FAERS Safety Report 15117977 (Version 3)
Quarter: 2018Q3

REPORT INFORMATION
  Report Type: Spontaneous
  Country: US (occurrence: US)
  Receive Date: 20180706
  Receipt Date: 20180810
  Transmission Date: 20181010
  Serious: Yes (Hospitalization)
  Sender: FDA-Public Use
  Company Number: US-SHIRE-US201824237

PATIENT
  Sex: Female

DRUGS (1)
  1. GATTEX [Suspect]
     Active Substance: TEDUGLUTIDE\WATER
     Indication: PRODUCT USED FOR UNKNOWN INDICATION
     Dosage: 0.28 ML, UNK
     Route: 065
     Dates: start: 20180419

REACTIONS (5)
  - Drug effect decreased [Recovering/Resolving]
  - Pupil dilation procedure [Unknown]
  - Stoma complication [Recovering/Resolving]
  - Weight increased [Recovering/Resolving]
  - Malaise [Unknown]
